FAERS Safety Report 8043492-1 (Version None)
Quarter: 2012Q1

REPORT INFORMATION
  Report Type: 
  Country: None (occurrence: None)
  Receive Date: 20120112
  Receipt Date: 20120109
  Transmission Date: 20120608
  Serious: Yes (Disabling)
  Sender: FDA-Public Use
  Company Number: US-PFIZER INC-2011305359

PATIENT
  Sex: Male

DRUGS (12)
  1. ZOLOFT [Suspect]
     Indication: PANIC DISORDER
  2. ZOLOFT [Suspect]
     Indication: DEPRESSION
     Dosage: 25 MG, 1X/DAY AT 9 AM
     Route: 048
     Dates: start: 20100101
  3. WELLBUTRIN SR [Concomitant]
     Indication: DEPRESSION
     Dosage: 100 MG, 1X/DAY AT 9AM
     Route: 048
     Dates: start: 20100101
  4. WELLBUTRIN SR [Concomitant]
     Indication: PANIC DISORDER
  5. LORAZEPAM [Concomitant]
     Indication: DISTURBANCE IN ATTENTION
  6. WELLBUTRIN SR [Concomitant]
     Indication: ANXIETY
  7. ZOLOFT [Suspect]
     Indication: DISTURBANCE IN ATTENTION
  8. WELLBUTRIN SR [Concomitant]
     Indication: DISTURBANCE IN ATTENTION
  9. LORAZEPAM [Concomitant]
     Indication: DEPRESSION
     Dosage: 0.5 UNK, QHS
     Route: 048
  10. LORAZEPAM [Concomitant]
     Indication: PANIC DISORDER
  11. ZOLOFT [Suspect]
     Indication: ANXIETY
  12. LORAZEPAM [Concomitant]
     Indication: ANXIETY

REACTIONS (1)
  - SURGERY [None]
